FAERS Safety Report 15842920 (Version 1)
Quarter: 2019Q1

REPORT INFORMATION
  Report Type: Spontaneous
  Country: BR (occurrence: BR)
  Receive Date: 20190118
  Receipt Date: 20190118
  Transmission Date: 20190417
  Serious: Yes (Other)
  Sender: FDA-Public Use
  Company Number: BR-PFIZER INC-2019023360

PATIENT
  Age: 21 Year
  Sex: Male
  Weight: 72 kg

DRUGS (2)
  1. PANTOPRAZOLE [Suspect]
     Active Substance: PANTOPRAZOLE
     Indication: OESOPHAGITIS
     Dosage: UNK
     Route: 048
     Dates: start: 201901
  2. DEXILANT [Suspect]
     Active Substance: DEXLANSOPRAZOLE
     Indication: OESOPHAGITIS
     Dosage: 60 MG, 1X/DAY
     Route: 048
     Dates: start: 201812, end: 20190107

REACTIONS (8)
  - Hypertension [Not Recovered/Not Resolved]
  - Feeling hot [Recovered/Resolved]
  - Chest discomfort [Recovered/Resolved]
  - Asthenia [Not Recovered/Not Resolved]
  - Malaise [Recovered/Resolved]
  - Arrhythmia [Recovered/Resolved]
  - Blood pressure decreased [Recovered/Resolved]
  - Tremor [Recovered/Resolved]

NARRATIVE: CASE EVENT DATE: 20190114
